FAERS Safety Report 9540860 (Version 1)
Quarter: 2013Q3

REPORT INFORMATION
  Report Type: Spontaneous
  Country: US (occurrence: US)
  Receive Date: 20130920
  Receipt Date: 20130920
  Transmission Date: 20140515
  Serious: Yes (Other)
  Sender: FDA-Public Use
  Company Number: US-JNJFOC-20130903837

PATIENT
  Age: 1 Year
  Sex: Male
  Weight: 12.7 kg

DRUGS (3)
  1. MOTRIN INFANTS [Suspect]
     Route: 048
  2. MOTRIN INFANTS [Suspect]
     Indication: PYREXIA
     Dosage: 3 TO 4 TIMES A DAY
     Route: 048
     Dates: start: 20130903, end: 20130904
  3. ^VITAMINS^ (NOS) [Concomitant]
     Indication: ROUTINE HEALTH MAINTENANCE
     Dosage: 1/TBL
     Route: 065
     Dates: start: 201308

REACTIONS (1)
  - Convulsion [Recovering/Resolving]
